FAERS Safety Report 10095994 (Version 1)
Quarter: 2014Q2

REPORT INFORMATION
  Report Type: Spontaneous
  Country: US (occurrence: US)
  Receive Date: 20140422
  Receipt Date: 20140422
  Transmission Date: 20141212
  Serious: Yes (Hospitalization)
  Sender: FDA-Public Use
  Company Number: US-GLAXOSMITHKLINE-A1069625A

PATIENT
  Age: 77 Year
  Sex: Male

DRUGS (6)
  1. COREG [Suspect]
     Indication: BLOOD PRESSURE
     Dosage: 6.25MG TWICE PER DAY
     Route: 048
  2. LISINOPRIL [Concomitant]
  3. STEROID [Concomitant]
  4. FINASTERIDE [Concomitant]
  5. LASIX [Concomitant]
  6. IMDUR [Concomitant]

REACTIONS (4)
  - Loss of consciousness [Recovered/Resolved]
  - Constipation [Recovered/Resolved]
  - Gastric disorder [Recovered/Resolved]
  - Dehydration [Recovered/Resolved]
